FAERS Safety Report 5972726-X (Version None)
Quarter: 2008Q4

REPORT INFORMATION
  Report Type: 
  Country: None (occurrence: None)
  Receive Date: 20081201
  Receipt Date: 20081031
  Transmission Date: 20090506
  Serious: No
  Sender: FDA-Public Use
  Company Number: US-BAYER-200837410NA

PATIENT
  Age: 54 Year
  Weight: 54 kg

DRUGS (1)
  1. MAGNEVIST [Suspect]
     Indication: NUCLEAR MAGNETIC RESONANCE IMAGING ABDOMINAL
     Dosage: TOTAL DAILY DOSE: 12 ML  UNIT DOSE: 100 ML
     Route: 042
     Dates: start: 20081030, end: 20081030

REACTIONS (2)
  - HYPOAESTHESIA ORAL [None]
  - PARAESTHESIA ORAL [None]
